FAERS Safety Report 15592917 (Version 1)
Quarter: 2018Q4

REPORT INFORMATION
  Report Type: Spontaneous
  Country: US (occurrence: US)
  Receive Date: 20181107
  Receipt Date: 20181107
  Transmission Date: 20190205
  Serious: No
  Sender: FDA-Public Use
  Company Number: None

PATIENT
  Age: 38 Year
  Sex: Female
  Weight: 99 kg

DRUGS (2)
  1. CONTRAVE [Suspect]
     Active Substance: BUPROPION HYDROCHLORIDE\NALTREXONE HYDROCHLORIDE
     Indication: WEIGHT DECREASED
     Dosage: ?          QUANTITY:1 TABLET(S);OTHER FREQUENCY:1 PILL TO 4 DAILY;?
     Route: 048
     Dates: start: 20181029, end: 20181101
  2. MULTIVITAMINS [Concomitant]
     Active Substance: VITAMINS

REACTIONS (6)
  - Hyperhidrosis [None]
  - Migraine [None]
  - Heart rate increased [None]
  - Nausea [None]
  - Presyncope [None]
  - Suicidal ideation [None]

NARRATIVE: CASE EVENT DATE: 20181031
